FAERS Safety Report 13738809 (Version 3)
Quarter: 2017Q3

REPORT INFORMATION
  Report Type: Spontaneous
  Country: CL (occurrence: CL)
  Receive Date: 20170710
  Receipt Date: 20170810
  Transmission Date: 20171127
  Serious: Yes (Death, Hospitalization, Other)
  Sender: FDA-Public Use
  Company Number: CL-PFIZER INC-2017293769

PATIENT
  Sex: Female

DRUGS (1)
  1. UPLYSO [Suspect]
     Active Substance: TALIGLUCERASE ALFA
     Indication: GAUCHER^S DISEASE
     Dosage: UNK
     Dates: start: 2014, end: 201705

REACTIONS (5)
  - Underweight [Fatal]
  - Ascites [Unknown]
  - General physical health deterioration [Fatal]
  - Multiple organ dysfunction syndrome [Fatal]
  - Hepatic failure [Fatal]

NARRATIVE: CASE EVENT DATE: 2016
